FAERS Safety Report 4344164-7 (Version None)
Quarter: 2004Q2

REPORT INFORMATION
  Report Type: 
  Country: None (occurrence: None)
  Receive Date: 20040422
  Receipt Date: 20040413
  Transmission Date: 20050107
  Serious: Yes (Other)
  Sender: FDA-Public Use
  Company Number: PHEH2004US04168

PATIENT
  Age: 76 Year
  Sex: Male

DRUGS (2)
  1. ZELNORM [Suspect]
     Indication: GASTROINTESTINAL DISORDER
     Dosage: 6 MG, BID
     Route: 048
     Dates: start: 20040330, end: 20040407
  2. PREVACID [Concomitant]
     Indication: HIATUS HERNIA

REACTIONS (2)
  - BLOOD URINE [None]
  - MEDICATION ERROR [None]
